FAERS Safety Report 6771355-8 (Version None)
Quarter: 2010Q2

REPORT INFORMATION
  Report Type: 
  Country: None (occurrence: None)
  Receive Date: 20100616
  Receipt Date: 20100610
  Transmission Date: 20101027
  Serious: Yes (Hospitalization)
  Sender: FDA-Public Use
  Company Number: FR-BRISTOL-MYERS SQUIBB COMPANY-15146582

PATIENT
  Age: 75 Year
  Sex: Female

DRUGS (4)
  1. COUMADIN [Suspect]
     Indication: VENOUS THROMBOSIS
     Dosage: INTERRUPTED ON 29JAN10+30JAN10
     Route: 048
     Dates: start: 20100115, end: 20100205
  2. LODOZ [Concomitant]
  3. SOLUPRED [Concomitant]
  4. ZANIDIP [Concomitant]

REACTIONS (2)
  - FALL [None]
  - SUBDURAL HAEMATOMA [None]
